FAERS Safety Report 8469780-2 (Version None)
Quarter: 2012Q2

REPORT INFORMATION
  Report Type: 
  Country: None (occurrence: None)
  Receive Date: 20120626
  Receipt Date: 20120621
  Transmission Date: 20120825
  Serious: Yes (Disabling)
  Sender: FDA-Public Use
  Company Number: US-MERCK-1202USA03807

PATIENT
  Age: 62 Year
  Sex: Female
  Weight: 97 kg

DRUGS (25)
  1. FLUOXETINE [Concomitant]
     Route: 065
  2. CLONIDINE [Concomitant]
     Route: 048
  3. FERROUS SULFATE [Concomitant]
     Route: 065
  4. METAMUCIL-2 [Concomitant]
     Route: 065
  5. LEVOTHYROXINE SODIUM [Concomitant]
     Indication: HYPOTHYROIDISM
     Route: 065
  6. LASIX [Concomitant]
     Indication: OEDEMA
     Route: 065
  7. ASCORBIC ACID [Concomitant]
     Route: 065
  8. RED YEAST [Concomitant]
     Route: 065
  9. JANUVIA [Suspect]
     Indication: TYPE 2 DIABETES MELLITUS
     Route: 048
     Dates: start: 20120222, end: 20120306
  10. LACTOBACILLUS ACIDOPHILUS [Concomitant]
     Route: 065
  11. JANUVIA [Suspect]
     Route: 048
     Dates: start: 20120222, end: 20120306
  12. GLIPIZIDE [Concomitant]
     Route: 065
  13. PRILOSEC [Concomitant]
     Route: 065
  14. METFORMIN [Concomitant]
     Route: 065
  15. HYDROCHLOROTHIAZIDE [Concomitant]
     Route: 065
  16. METFORMIN [Concomitant]
     Route: 065
  17. METHYLDOPA [Concomitant]
     Route: 065
  18. ACETAMINOPHEN [Concomitant]
     Route: 065
  19. NAPROXEN [Concomitant]
     Route: 065
  20. ZYRTEC [Concomitant]
     Route: 065
  21. CYANOCOBALAMIN [Concomitant]
     Route: 030
  22. ATENOLOL [Concomitant]
     Route: 065
  23. CLONIDINE [Concomitant]
     Route: 048
  24. ASPIRIN [Concomitant]
     Route: 065
  25. IBUPROFEN [Concomitant]
     Indication: PAIN
     Route: 065

REACTIONS (5)
  - DIARRHOEA [None]
  - HEADACHE [None]
  - FATIGUE [None]
  - NAUSEA [None]
  - DRUG HYPERSENSITIVITY [None]
